FAERS Safety Report 7729615-X (Version None)
Quarter: 2011Q3

REPORT INFORMATION
  Report Type: 
  Country: None (occurrence: None)
  Receive Date: 20110901
  Receipt Date: 20110901
  Transmission Date: 20111222
  Serious: Yes (Hospitalization)
  Sender: FDA-Public Use
  Company Number: None

PATIENT
  Age: 33 Year
  Sex: Male
  Weight: 78.6 kg

DRUGS (1)
  1. TRAMADOL HYDROCHLORIDE [Suspect]
     Indication: PAIN
     Dosage: 100 MG QID PO
     Route: 048
     Dates: start: 20100312, end: 20110405

REACTIONS (1)
  - INSOMNIA [None]
